FAERS Safety Report 17195840 (Version 1)
Quarter: 2019Q4

REPORT INFORMATION
  Report Type: Report from Study
  Country: IT (occurrence: IT)
  Receive Date: 20191224
  Receipt Date: 20191224
  Transmission Date: 20200122
  Serious: Yes (Other)
  Sender: FDA-Public Use
  Company Number: IT-TEVA-2019-IT-1156051

PATIENT
  Age: 73 Year
  Sex: Female
  Weight: 49 kg

DRUGS (3)
  1. PAXABEL 10 G POLVERE PER SOLUZIONE ORALE IN BUSTINA [Concomitant]
     Dosage: 10 G
     Route: 048
  2. LEVOFLOXACIN. [Suspect]
     Active Substance: LEVOFLOXACIN
     Indication: SYSTEMIC INFECTION
     Dosage: 500 MG
     Route: 048
     Dates: start: 20190417, end: 20190423
  3. DAFLON [Concomitant]
     Route: 048

REACTIONS (4)
  - Drug ineffective [Recovered/Resolved]
  - Erythema [Recovered/Resolved]
  - Systemic infection [Recovered/Resolved]
  - Pyrexia [Recovered/Resolved]

NARRATIVE: CASE EVENT DATE: 20190418
